FAERS Safety Report 5101800-5 (Version None)
Quarter: 2006Q3

REPORT INFORMATION
  Report Type: 
  Country: None (occurrence: None)
  Receive Date: 20060731
  Receipt Date: 20060518
  Transmission Date: 20061208
  Serious: No
  Sender: FDA-Public Use
  Company Number: 2006PV014102

PATIENT
  Age: 56 Year
  Sex: Female
  Weight: 160.1197 kg

DRUGS (3)
  1. BYETTA [Suspect]
     Indication: DIABETES MELLITUS NON-INSULIN-DEPENDENT
     Dosage: SEE IMAGE
     Route: 058
     Dates: start: 20050901, end: 20060301
  2. BYETTA [Suspect]
     Indication: DIABETES MELLITUS NON-INSULIN-DEPENDENT
     Dosage: SEE IMAGE
     Route: 058
     Dates: start: 20060301
  3. ACTOS [Concomitant]

REACTIONS (6)
  - BLOOD GLUCOSE INCREASED [None]
  - BURSITIS [None]
  - CONSTIPATION [None]
  - HEADACHE [None]
  - NASOPHARYNGITIS [None]
  - NAUSEA [None]
